FAERS Safety Report 5716627-0 (Version None)
Quarter: 2008Q2

REPORT INFORMATION
  Report Type: 
  Country: None (occurrence: None)
  Receive Date: 20080424
  Receipt Date: 20080416
  Transmission Date: 20081010
  Serious: Yes (Hospitalization)
  Sender: FDA-Public Use
  Company Number: US-KINGPHARMUSA00001-K200800459

PATIENT
  Sex: Female

DRUGS (1)
  1. FLORINEF [Suspect]

REACTIONS (1)
  - ADVERSE EVENT [None]
